FAERS Safety Report 9659860 (Version 1)
Quarter: 2013Q4

REPORT INFORMATION
  Report Type: Spontaneous
  Country: US (occurrence: US)
  Receive Date: 20131031
  Receipt Date: 20131031
  Transmission Date: 20140711
  Serious: Yes (Hospitalization)
  Sender: FDA-Public Use
  Company Number: US-SA-2013SA111128

PATIENT
  Age: 63 Year
  Sex: Male

DRUGS (3)
  1. LANTUS [Suspect]
     Indication: DIABETES MELLITUS
     Dosage: DOSE:25 UNIT(S)
     Route: 058
  2. METFORMIN [Concomitant]
     Dosage: 2 PILLS AFTER BREAKFAST AND DINNER
  3. HUMALOG [Concomitant]

REACTIONS (5)
  - Adverse event [Not Recovered/Not Resolved]
  - Pain [Not Recovered/Not Resolved]
  - Back disorder [Not Recovered/Not Resolved]
  - Arthritis [Not Recovered/Not Resolved]
  - Hypoacusis [Not Recovered/Not Resolved]
